FAERS Safety Report 8626027-1 (Version None)
Quarter: 2012Q3

REPORT INFORMATION
  Report Type: 
  Country: None (occurrence: None)
  Receive Date: 20120827
  Receipt Date: 20120823
  Transmission Date: 20120928
  Serious: Yes (Death)
  Sender: FDA-Public Use
  Company Number: US-CELGENEUS-163-21880-12082630

PATIENT
  Sex: Female

DRUGS (9)
  1. FENOFIBRATE [Concomitant]
     Route: 065
  2. FOLIC ACID [Concomitant]
     Route: 065
  3. REVLIMID [Suspect]
     Indication: MYELODYSPLASTIC SYNDROME
     Dosage: 10 MILLIGRAM
     Route: 048
     Dates: start: 20120721, end: 20120101
  4. CARVEDILOL [Concomitant]
     Route: 065
  5. LISINOPRIL [Concomitant]
     Route: 065
  6. GLUCOPHAGE [Concomitant]
     Route: 065
  7. FERROUS GLUCONATE [Concomitant]
     Route: 065
  8. VITAMIN B-12 [Concomitant]
     Route: 065
  9. ZOCOR [Concomitant]
     Route: 065

REACTIONS (1)
  - DEATH [None]
